FAERS Safety Report 5938399-7 (Version None)
Quarter: 2008Q4

REPORT INFORMATION
  Report Type: 
  Country: None (occurrence: None)
  Receive Date: 20081103
  Receipt Date: 20081020
  Transmission Date: 20090506
  Serious: Yes (Hospitalization, Other)
  Sender: FDA-Public Use
  Company Number: US-ROCHE-552211

PATIENT
  Sex: Male
  Weight: 74.8 kg

DRUGS (3)
  1. ACCUTANE [Suspect]
     Indication: ACNE
     Dosage: THE PATIENT WAS TAKING ISOTRETINOIN 40 MG 1 EVERY OTHER DAY ALTERNATING WITH 2 EVERY OTHER DAY.
     Route: 065
     Dates: start: 20020429, end: 20020527
  2. ACCUTANE [Suspect]
     Route: 065
     Dates: start: 20020528, end: 20021001
  3. NAPROSYN [Concomitant]

REACTIONS (15)
  - ABDOMINAL HERNIA [None]
  - ANXIETY [None]
  - BARRETT'S OESOPHAGUS [None]
  - CHOLECYSTITIS [None]
  - COLITIS [None]
  - CROHN'S DISEASE [None]
  - DEPRESSION [None]
  - DRY SKIN [None]
  - GASTROINTESTINAL MUCOSAL DISORDER [None]
  - GASTROOESOPHAGEAL REFLUX DISEASE [None]
  - ILEAL ULCER [None]
  - INFLAMMATORY BOWEL DISEASE [None]
  - LIP DRY [None]
  - PANCREATITIS [None]
  - POST PROCEDURAL HAEMORRHAGE [None]
